FAERS Safety Report 19086095 (Version 1)
Quarter: 2021Q2

REPORT INFORMATION
  Report Type: Spontaneous
  Country: US (occurrence: US)
  Receive Date: 20210402
  Receipt Date: 20210402
  Transmission Date: 20210717
  Serious: Yes (Other)
  Sender: FDA-Public Use
  Company Number: US-PFIZER INC-2021343996

PATIENT
  Age: 57 Year
  Sex: Female
  Weight: 54.88 kg

DRUGS (12)
  1. XELJANZ [Suspect]
     Active Substance: TOFACITINIB CITRATE
     Indication: RHEUMATOID ARTHRITIS
     Dosage: 5 MG, 2X/DAY
     Route: 048
     Dates: start: 20210219
  2. IRON [Concomitant]
     Active Substance: IRON
     Dosage: UNK (159(45)MG)
  3. MORPHINE SULFATE. [Concomitant]
     Active Substance: MORPHINE SULFATE
     Dosage: 15 MG
  4. BENADRYL [Concomitant]
     Active Substance: DIPHENHYDRAMINE HYDROCHLORIDE
     Dosage: 25 MG
  5. HYDROCORTISONE. [Concomitant]
     Active Substance: HYDROCORTISONE
     Dosage: UNK
  6. VITAMIN D3 [Concomitant]
     Active Substance: CHOLECALCIFEROL
     Dosage: 10 UG
  7. PROBIOTICS [Concomitant]
     Active Substance: PROBIOTICS NOS
     Dosage: UNK (15B CELL CAP SPRINK)
  8. RANITIDINE. [Concomitant]
     Active Substance: RANITIDINE
     Dosage: UNK (POWDER)
  9. MELOXICAM. [Concomitant]
     Active Substance: MELOXICAM
     Dosage: UNK (100 % POWDER)
  10. FISH OIL [Concomitant]
     Active Substance: FISH OIL
     Dosage: UNK (100?150 MG)
  11. ELECTROLYTE SOLUTIONS [ELECTROLYTES NOS] [Concomitant]
     Dosage: UNK
  12. MIDODRINE HCL [Concomitant]
     Active Substance: MIDODRINE HYDROCHLORIDE
     Dosage: 100 MG

REACTIONS (4)
  - Rectal haemorrhage [Unknown]
  - Vaginal haemorrhage [Unknown]
  - Rash [Unknown]
  - Lymphadenopathy [Unknown]
